FAERS Safety Report 9103755 (Version 1)
Quarter: 2013Q1

REPORT INFORMATION
  Report Type: Spontaneous
  Country: US (occurrence: US)
  Receive Date: 20130219
  Receipt Date: 20130219
  Transmission Date: 20140127
  Serious: No
  Sender: FDA-Public Use
  Company Number: US-SANOFI-AVENTIS-2012SA055638

PATIENT
  Sex: Female

DRUGS (3)
  1. GLYBURIDE [Suspect]
     Route: 065
  2. METFORMIN [Suspect]
     Route: 065
  3. METFORMIN HYDROCHLORIDE [Suspect]
     Route: 065

REACTIONS (3)
  - Blood glucose increased [Not Recovered/Not Resolved]
  - Glycosylated haemoglobin increased [Unknown]
  - Pancreatic disorder [Not Recovered/Not Resolved]
